FAERS Safety Report 17787932 (Version 1)
Quarter: 2020Q2

REPORT INFORMATION
  Report Type: Spontaneous
  Country: CA (occurrence: CA)
  Receive Date: 20200515
  Receipt Date: 20200515
  Transmission Date: 20200714
  Serious: Yes (Other)
  Sender: FDA-Public Use
  Company Number: CA-B.I. PHARMACEUTICALS,INC./RIDGEFIELD-2020-BI-023856

PATIENT
  Age: 73 Year
  Sex: Male

DRUGS (3)
  1. SALBUTAMOL SULFATE [Suspect]
     Active Substance: ALBUTEROL SULFATE
     Indication: PRODUCT USED FOR UNKNOWN INDICATION
     Route: 065
  2. ADVAIR HFA [Suspect]
     Active Substance: FLUTICASONE PROPIONATE\SALMETEROL XINAFOATE
     Indication: PRODUCT USED FOR UNKNOWN INDICATION
     Route: 065
  3. ATROVENT [Suspect]
     Active Substance: IPRATROPIUM BROMIDE
     Indication: PRODUCT USED FOR UNKNOWN INDICATION
     Route: 065

REACTIONS (18)
  - Apnoea [Unknown]
  - Fatigue [Unknown]
  - Irritability [Unknown]
  - Therapeutic product effect incomplete [Unknown]
  - Sleep apnoea syndrome [Unknown]
  - Dust allergy [Unknown]
  - Nerve injury [Unknown]
  - Poor quality sleep [Unknown]
  - Snoring [Unknown]
  - Asthma [Unknown]
  - Gastrooesophageal reflux disease [Unknown]
  - Somnolence [Unknown]
  - Discomfort [Unknown]
  - Fibromyalgia [Unknown]
  - Initial insomnia [Unknown]
  - Spondylitis [Unknown]
  - Bronchiectasis [Unknown]
  - Sinusitis [Unknown]
